FAERS Safety Report 5958294-7 (Version None)
Quarter: 2008Q4

REPORT INFORMATION
  Report Type: 
  Country: None (occurrence: None)
  Receive Date: 20081117
  Receipt Date: 20081117
  Transmission Date: 20090506
  Serious: Yes (Hospitalization)
  Sender: FDA-Public Use
  Company Number: None

PATIENT
  Age: 46 Year
  Sex: Female
  Weight: 86.1834 kg

DRUGS (1)
  1. LYRICA [Suspect]
     Indication: FIBROMYALGIA
     Dosage: 75MG 5 TIMES A DAY PO
     Route: 048
     Dates: start: 20061201, end: 20081007

REACTIONS (4)
  - DRY MOUTH [None]
  - ULCER [None]
  - VISION BLURRED [None]
  - WEIGHT INCREASED [None]
